FAERS Safety Report 24118349 (Version 2)
Quarter: 2024Q3

REPORT INFORMATION
  Report Type: Report from Study
  Country: TW (occurrence: None)
  Receive Date: 20240722
  Receipt Date: 20240808
  Transmission Date: 20241016
  Serious: Yes (Other)
  Sender: ASTRAZENECA
  Company Number: 2023A040149

PATIENT
  Age: 50 Year
  Sex: Male

DRUGS (1)
  1. IMFINZI [Suspect]
     Active Substance: DURVALUMAB
     Route: 042
     Dates: start: 20220728

REACTIONS (2)
  - Pulmonary oedema [Recovered/Resolved]
  - COVID-19 [Unknown]
